FAERS Safety Report 6054172-6 (Version None)
Quarter: 2009Q1

REPORT INFORMATION
  Report Type: 
  Country: None (occurrence: None)
  Receive Date: 20090127
  Receipt Date: 20090119
  Transmission Date: 20090719
  Serious: Yes (Death, Other)
  Sender: FDA-Public Use
  Company Number: JP-ABBOTT-08P-087-0489956-00

PATIENT
  Sex: Female

DRUGS (2)
  1. SEVOFLURANE [Suspect]
     Indication: ANAESTHESIA
  2. SEVOFLURANE [Suspect]
     Indication: SPINAL OPERATION

REACTIONS (29)
  - ACUTE HEPATIC FAILURE [None]
  - ASCITES [None]
  - BLOOD BILIRUBIN INCREASED [None]
  - CARDIAC FAILURE [None]
  - DISSEMINATED INTRAVASCULAR COAGULATION [None]
  - DUODENITIS [None]
  - GENERALISED OEDEMA [None]
  - HAEMORRHAGE [None]
  - HAEMORRHAGIC DIATHESIS [None]
  - HEPATIC ARTERY OCCLUSION [None]
  - HEPATIC FAILURE [None]
  - HEPATIC INFARCTION [None]
  - HEPATIC NECROSIS [None]
  - HEPATITIS FULMINANT [None]
  - HYPOPERFUSION [None]
  - INTESTINAL ISCHAEMIA [None]
  - ISCHAEMIC HEPATITIS [None]
  - LIVER DISORDER [None]
  - NEPHROTIC SYNDROME [None]
  - OEDEMA [None]
  - PANCREATITIS ACUTE [None]
  - PERICARDIAL EFFUSION [None]
  - PLEURAL EFFUSION [None]
  - PULMONARY OEDEMA [None]
  - RETROPERITONEAL HAEMATOMA [None]
  - RIB FRACTURE [None]
  - TRANSAMINASES INCREASED [None]
  - VOLUME BLOOD DECREASED [None]
  - WEIGHT INCREASED [None]
